FAERS Safety Report 6118894-0 (Version None)
Quarter: 2009Q1

REPORT INFORMATION
  Report Type: 
  Country: None (occurrence: None)
  Receive Date: 20090316
  Receipt Date: 20090304
  Transmission Date: 20090719
  Serious: Yes (Other)
  Sender: FDA-Public Use
  Company Number: US-SANOFI-SYNTHELABO-A03200900972

PATIENT
  Age: 58 Year
  Sex: Male

DRUGS (2)
  1. PROTONIX [Interacting]
     Indication: DRUG USE FOR UNKNOWN INDICATION
     Dosage: UNK
     Route: 048
     Dates: start: 20070101, end: 20090101
  2. PLAVIX [Suspect]
     Indication: STENT PLACEMENT
     Route: 048

REACTIONS (2)
  - DRUG INTERACTION [None]
  - ISCHAEMIC STROKE [None]
